FAERS Safety Report 13135662 (Version 3)
Quarter: 2017Q1

REPORT INFORMATION
  Report Type: Spontaneous
  Country: US (occurrence: US)
  Receive Date: 20170120
  Receipt Date: 20170315
  Transmission Date: 20170428
  Serious: Yes (Death)
  Sender: FDA-Public Use
  Company Number: US-TAIHO ONCOLOGY INC-EU-2017-00073

PATIENT
  Age: 45 Year
  Sex: Male

DRUGS (5)
  1. LONSURF [Suspect]
     Active Substance: TIPIRACIL HYDROCHLORIDE\TRIFLURIDINE
     Dosage: STOPPED AFTER 2 DAY AND RESTARTED 04OCT2016; COMPLETED 2 CYCLES
     Route: 048
     Dates: start: 20160926, end: 20161117
  2. ONDANSETRON [Concomitant]
     Active Substance: ONDANSETRON
     Dosage: NI
  3. MEGACE [Concomitant]
     Active Substance: MEGESTROL ACETATE
     Dosage: NI
  4. LACTULOSE. [Concomitant]
     Active Substance: LACTULOSE
     Dosage: NI
  5. LORAZEPAM. [Concomitant]
     Active Substance: LORAZEPAM
     Dosage: NI

REACTIONS (1)
  - Disease progression [Fatal]

NARRATIVE: CASE EVENT DATE: 20161118
